FAERS Safety Report 5429575-0 (Version None)
Quarter: 2007Q3

REPORT INFORMATION
  Report Type: 
  Country: None (occurrence: None)
  Receive Date: 20070829
  Receipt Date: 20070522
  Transmission Date: 20080115
  Serious: No
  Sender: FDA-Public Use
  Company Number: A0649956A

PATIENT
  Age: 42 Year
  Sex: Female
  Weight: 59.1 kg

DRUGS (3)
  1. EPZICOM [Suspect]
     Indication: DRUG USE FOR UNKNOWN INDICATION
     Dosage: 2TAB TWICE PER DAY
     Route: 048
     Dates: start: 20070411, end: 20070423
  2. DARUNAVIR [Concomitant]
     Dosage: 1TAB PER DAY
     Route: 048
  3. NORVIR [Concomitant]
     Dosage: 1TAB TWICE PER DAY
     Route: 048

REACTIONS (2)
  - MEDICATION ERROR [None]
  - RASH GENERALISED [None]
